FAERS Safety Report 6555240-2 (Version None)
Quarter: 2010Q1

REPORT INFORMATION
  Report Type: 
  Country: None (occurrence: None)
  Receive Date: 20100128
  Receipt Date: 20081210
  Transmission Date: 20100710
  Serious: No
  Sender: FDA-Public Use
  Company Number: A0760031A

PATIENT
  Age: 51 Year
  Sex: Female

DRUGS (4)
  1. WELLBUTRIN [Suspect]
     Indication: DEPRESSION
     Dosage: 75MG PER DAY
     Route: 048
     Dates: start: 20081110, end: 20081118
  2. WELLBUTRIN [Suspect]
     Dosage: 100MG PER DAY
     Route: 048
     Dates: start: 20081119, end: 20081208
  3. WELLBUTRIN [Suspect]
     Dosage: 150MG PER DAY
     Route: 048
     Dates: start: 20081209
  4. ADVIL [Concomitant]

REACTIONS (7)
  - ANXIETY [None]
  - DISTURBANCE IN ATTENTION [None]
  - FORMICATION [None]
  - HEADACHE [None]
  - INCORRECT DOSE ADMINISTERED [None]
  - INSOMNIA [None]
  - PRURITUS [None]
